FAERS Safety Report 5535541-7 (Version None)
Quarter: 2007Q4

REPORT INFORMATION
  Report Type: 
  Country: None (occurrence: None)
  Receive Date: 20071120
  Receipt Date: 20070813
  Transmission Date: 20080405
  Serious: No
  Sender: FDA-Public Use
  Company Number: WAES 0708USA02512

PATIENT
  Age: 65 Year
  Sex: Male

DRUGS (6)
  1. JANUVIA [Suspect]
     Indication: DIABETES MELLITUS
     Dosage: 100 MG DAILY PO
     Route: 048
     Dates: start: 20070501, end: 20070813
  2. ACTOS [Concomitant]
  3. LYRICA [Concomitant]
  4. VASOTEC [Concomitant]
  5. ZOCOR [Concomitant]
  6. THERAPY UNSPECIFIED [Concomitant]

REACTIONS (1)
  - BLOOD GLUCOSE INCREASED [None]
